FAERS Safety Report 7457964-1 (Version None)
Quarter: 2011Q2

REPORT INFORMATION
  Report Type: 
  Country: None (occurrence: None)
  Receive Date: 20110502
  Receipt Date: 20110502
  Transmission Date: 20111010
  Serious: Yes (Other)
  Sender: FDA-Public Use
  Company Number: None

PATIENT

DRUGS (1)
  1. LOESTRIN 1/10 FE [Suspect]
     Indication: CONTRACEPTION
     Dosage: ONE EVERY DAY PO
     Route: 048

REACTIONS (2)
  - WRONG DRUG ADMINISTERED [None]
  - MEDICATION ERROR [None]
